FAERS Safety Report 9891803 (Version 1)
Quarter: 2014Q1

REPORT INFORMATION
  Report Type: Spontaneous
  Country: FR (occurrence: FR)
  Receive Date: 20140212
  Receipt Date: 20140212
  Transmission Date: 20141002
  Serious: Yes (Life-Threatening, Hospitalization, Other)
  Sender: FDA-Public Use
  Company Number: FR-PFIZER INC-2014038094

PATIENT
  Age: 42 Year
  Sex: Male

DRUGS (5)
  1. LYRICA [Suspect]
     Dosage: 300 MG, 2X/DAY
     Route: 048
  2. LYRICA [Suspect]
     Dosage: 28 DF
     Dates: start: 201401
  3. RIVOTRIL [Suspect]
     Dosage: 3 MG DAILY
     Route: 048
  4. RIVOTRIL [Suspect]
     Dosage: 72 DF
     Dates: start: 201401
  5. AMITRIPTYLINE [Suspect]
     Dosage: UNK

REACTIONS (7)
  - Intentional overdose [Unknown]
  - Toxicity to various agents [Unknown]
  - Coma [Recovered/Resolved]
  - Hypothermia [Recovered/Resolved]
  - Staphylococcal infection [Unknown]
  - Bradycardia [Unknown]
  - Skin wound [Unknown]
